FAERS Safety Report 9052776 (Version 8)
Quarter: 2015Q1

REPORT INFORMATION
  Report Type: Spontaneous
  Country: BR (occurrence: BR)
  Receive Date: 20130207
  Receipt Date: 20150313
  Transmission Date: 20150721
  Serious: Yes (Other)
  Sender: FDA-Public Use
  Company Number: BR-PFIZER INC-2013044159

PATIENT
  Age: 83 Year
  Sex: Female
  Weight: 61 kg

DRUGS (6)
  1. PURAN [Concomitant]
     Active Substance: LEVOTHYROXINE SODIUM
  2. XALATAN [Suspect]
     Active Substance: LATANOPROST
     Dosage: UNK
  3. XALATAN [Suspect]
     Active Substance: LATANOPROST
     Indication: INTRAOCULAR PRESSURE TEST ABNORMAL
     Dosage: 1 DROP IN EACH EYE ONCE DAILY AT 22:00HRS (AT NIGHT)
     Route: 047
     Dates: start: 2013, end: 2013
  4. XALATAN [Suspect]
     Active Substance: LATANOPROST
     Indication: GLAUCOMA
     Dosage: UNK
  5. SIMVASTATIN. [Concomitant]
     Active Substance: SIMVASTATIN
  6. SOTALOL. [Concomitant]
     Active Substance: SOTALOL

REACTIONS (6)
  - Drug ineffective [Recovered/Resolved]
  - Conjunctivitis [Unknown]
  - Blood pressure increased [Unknown]
  - Cataract [Unknown]
  - Visual acuity reduced [Unknown]
  - Eye pruritus [Unknown]

NARRATIVE: CASE EVENT DATE: 20130130
